FAERS Safety Report 10515438 (Version 1)
Quarter: 2014Q3

REPORT INFORMATION
  Report Type: Spontaneous
  Country: US (occurrence: None)
  Receive Date: 20140926
  Receipt Date: 20140926
  Transmission Date: 20150326
  Serious: No
  Sender: FDA-Public Use
  Company Number: 1000070281

PATIENT
  Age: 17 Year
  Sex: Male

DRUGS (10)
  1. LINZESS [Suspect]
     Active Substance: LINACLOTIDE
     Indication: IRRITABLE BOWEL SYNDROME
     Route: 048
     Dates: start: 20140827
  2. VITAMIN D (VITAMIN D) (VITAMIN D) [Concomitant]
  3. PEPCID (FAMOTIDINE) (FAMOTIDINE) [Concomitant]
  4. CARAFATE (SUCRALFATE) (SUCRALFATE) [Concomitant]
  5. FLOVENT (FLUTICASONE PROPIONATE) (FLUTICSONE PROPIONATE) [Concomitant]
  6. PREVACID [Concomitant]
     Active Substance: LANSOPRAZOLE
  7. LINZESS [Suspect]
     Active Substance: LINACLOTIDE
     Indication: CONSTIPATION
     Route: 048
     Dates: start: 20140827
  8. ZYRTE (CETIRIAZINE HYDROCHLORIDE) (CETIRIZINE HYDROCHLORIDE) [Concomitant]
  9. CYPROHEPTADINE (CYCPROHEPTADINE) (CYOROHEPTADINE) [Concomitant]
  10. ZOFRAN (ONDANSETRONE) (ONDANSETRON) [Concomitant]

REACTIONS (2)
  - Off label use [None]
  - Diarrhoea [None]

NARRATIVE: CASE EVENT DATE: 20140827
